FAERS Safety Report 5688810-4 (Version None)
Quarter: 2008Q1

REPORT INFORMATION
  Report Type: 
  Country: None (occurrence: None)
  Receive Date: 20080331
  Receipt Date: 20080319
  Transmission Date: 20080703
  Serious: Yes (Hospitalization)
  Sender: FDA-Public Use
  Company Number: FR-AVENTIS-200811060FR

PATIENT
  Age: 43 Year
  Sex: Female

DRUGS (6)
  1. TRIATEC                            /00885601/ [Suspect]
     Indication: HYPERTENSION
     Route: 048
     Dates: start: 20040101, end: 20060401
  2. LANTUS [Suspect]
     Indication: DIABETES MELLITUS
     Route: 058
     Dates: end: 20060401
  3. METFORMIN HCL [Suspect]
     Indication: DIABETES MELLITUS
     Dates: start: 20040101, end: 20060401
  4. REPAGLINID [Suspect]
     Indication: DIABETES MELLITUS
     Dates: end: 20060401
  5. TACROLIMUS [Suspect]
     Dates: start: 19970101
  6. IRBESARTAN [Concomitant]
     Indication: HYPERTENSION
     Dates: start: 20060101, end: 20060401

REACTIONS (1)
  - ANAEMIA HAEMOLYTIC AUTOIMMUNE [None]
